FAERS Safety Report 9869684 (Version 1)
Quarter: 2014Q1

REPORT INFORMATION
  Report Type: Report from Study
  Country: JP (occurrence: JP)
  Receive Date: 20140205
  Receipt Date: 20140205
  Transmission Date: 20141002
  Serious: Yes (Other)
  Sender: FDA-Public Use
  Company Number: JP-009507513-1402JPN001056

PATIENT
  Age: 53 Year
  Sex: Male
  Weight: 78 kg

DRUGS (3)
  1. GLACTIV [Suspect]
     Indication: TYPE 2 DIABETES MELLITUS
     Dosage: 50 MG, ONCE A DAY, AFTER MEALS
     Route: 048
     Dates: start: 20110613, end: 20110801
  2. SEIBULE [Concomitant]
  3. ACTOS [Concomitant]

REACTIONS (1)
  - Retinal haemorrhage [Recovered/Resolved]
